FAERS Safety Report 16623695 (Version 1)
Quarter: 2019Q3

REPORT INFORMATION
  Report Type: Spontaneous
  Country: US (occurrence: US)
  Receive Date: 20190724
  Receipt Date: 20190724
  Transmission Date: 20191004
  Serious: No
  Sender: FDA-Public Use
  Company Number: US-ACCORD-073164

PATIENT
  Age: 66 Year
  Sex: Female
  Weight: 63.5 kg

DRUGS (1)
  1. AMITRIPTYLINE [Suspect]
     Active Substance: AMITRIPTYLINE
     Indication: PAIN
     Dosage: 10MG/ORAL/1-2 TABLETS NIGHTLY
     Route: 048
     Dates: start: 20180829, end: 201809

REACTIONS (5)
  - Malaise [Recovered/Resolved]
  - Off label use [Unknown]
  - Product substitution issue [Unknown]
  - Feeling jittery [Recovered/Resolved]
  - Panic reaction [Recovered/Resolved]
